FAERS Safety Report 10238397 (Version 1)
Quarter: 2014Q2

REPORT INFORMATION
  Report Type: Spontaneous
  Country: CA (occurrence: CA)
  Receive Date: 20140616
  Receipt Date: 20140616
  Transmission Date: 20141212
  Serious: Yes (Life-Threatening, Other)
  Sender: FDA-Public Use
  Company Number: CA-BAYER-2014-085766

PATIENT
  Age: 32 Year
  Sex: Female

DRUGS (6)
  1. ACETYLSALICYLIC ACID({=100 MG) [Suspect]
     Indication: THROMBOTIC THROMBOCYTOPENIC PURPURA
     Dosage: DAILY DOSE 81 MG
  2. PREDNISONE [Concomitant]
     Indication: THROMBOTIC THROMBOCYTOPENIC PURPURA
     Dosage: DAILY DOSE 125 MG, PROLONGED COURSE
  3. LABETALOL [Concomitant]
     Indication: BLOOD PRESSURE MANAGEMENT
     Dosage: 200 MG, BID
  4. LABETALOL [Concomitant]
     Indication: BLOOD PRESSURE MANAGEMENT
     Dosage: DOSE INCREASE
  5. THYROXINE [Concomitant]
     Indication: HYPOTHYROIDISM
     Dosage: DAILY DOSE .05 MG
  6. INSULIN [Concomitant]
     Indication: GESTATIONAL DIABETES

REACTIONS (9)
  - Exposure during pregnancy [None]
  - Off label use [None]
  - Oligohydramnios [None]
  - Caesarean section [None]
  - Procedural haemorrhage [Recovered/Resolved]
  - Pre-eclampsia [Recovered/Resolved]
  - Renal failure acute [Recovered/Resolved]
  - Choroidal infarction [None]
  - Postoperative wound infection [None]
